FAERS Safety Report 21016462 (Version 1)
Quarter: 2022Q2

REPORT INFORMATION
  Report Type: Spontaneous
  Country: US (occurrence: None)
  Receive Date: 20220627
  Receipt Date: 20220627
  Transmission Date: 20220721
  Serious: Yes (Hospitalization)
  Sender: FDA-Public Use
  Company Number: None

PATIENT
  Age: 75 Year
  Sex: Male

DRUGS (3)
  1. WARFARIN SODIUM [Suspect]
     Active Substance: WARFARIN SODIUM
     Indication: Deep vein thrombosis
     Dates: end: 20220428
  2. WARFARIN SODIUM [Suspect]
     Active Substance: WARFARIN SODIUM
     Indication: Pulmonary embolism
  3. ASPIRIN 81MG [Suspect]
     Active Substance: ASPIRIN
     Indication: Cerebrovascular accident
     Dosage: FREQUENCY : DAILY;?
     Route: 048
     Dates: end: 20220428

REACTIONS (3)
  - Haemorrhage [None]
  - Anaemia [None]
  - Gastric haemorrhage [None]

NARRATIVE: CASE EVENT DATE: 20220428
